FAERS Safety Report 5017577-8 (Version None)
Quarter: 2006Q2

REPORT INFORMATION
  Report Type: 
  Country: None (occurrence: None)
  Receive Date: 20060508
  Receipt Date: 20060508
  Transmission Date: 20061013
  Serious: No
  Sender: FDA-Public Use
  Company Number: None

PATIENT
  Age: 51 Year
  Sex: Female

DRUGS (7)
  1. METRONIDAZOLE [Suspect]
     Indication: ROSACEA
     Dosage: 1 APP BID TOPICAL
     Route: 061
     Dates: start: 20060323, end: 20060417
  2. PLACEBO [Suspect]
  3. AMBIEN [Concomitant]
  4. IMITREX [Concomitant]
  5. VICODIN [Concomitant]
  6. TYLENOL (CAPLET) [Concomitant]
  7. CELEXA [Concomitant]

REACTIONS (2)
  - ABSCESS INTESTINAL [None]
  - GASTROOESOPHAGEAL REFLUX DISEASE [None]
